FAERS Safety Report 9250356 (Version 1)
Quarter: 2013Q2

REPORT INFORMATION
  Report Type: Spontaneous
  Country: US (occurrence: None)
  Receive Date: 20130419
  Receipt Date: 20130419
  Transmission Date: 20140414
  Serious: Yes (Other)
  Sender: FDA-Public Use
  Company Number: None

PATIENT
  Sex: 0

DRUGS (1)
  1. TRAMADOL 50 MG AMNEAL PHARMACEUTICALS [Suspect]
     Indication: PAIN
     Dosage: 50 MG TID PRN PO
     Route: 048
     Dates: start: 20130417, end: 20130417

REACTIONS (1)
  - Trismus [None]
